FAERS Safety Report 4603119-5 (Version None)
Quarter: 2005Q1

REPORT INFORMATION
  Report Type: 
  Country: None (occurrence: None)
  Receive Date: 20050309
  Receipt Date: 20050227
  Transmission Date: 20050727
  Serious: Yes (Other)
  Sender: FDA-Public Use
  Company Number: GB-GLAXOSMITHKLINE-B0373889A

PATIENT
  Sex: Female

DRUGS (3)
  1. NIQUITIN CQ PATCH [Suspect]
     Route: 062
  2. AMOXICILLIN [Concomitant]
     Indication: CHEST PAIN
  3. INHALER [Concomitant]
     Indication: ASTHMA

REACTIONS (3)
  - ASTHMA [None]
  - CHEST PAIN [None]
  - UPPER RESPIRATORY TRACT INFECTION [None]
